FAERS Safety Report 18729794 (Version 3)
Quarter: 2021Q1

REPORT INFORMATION
  Report Type: Report from Study
  Country: US (occurrence: US)
  Receive Date: 20210112
  Receipt Date: 20210310
  Transmission Date: 20210419
  Serious: Yes (Hospitalization)
  Sender: FDA-Public Use
  Company Number: NVSC2021US003811

PATIENT
  Age: 53 Year
  Sex: Female
  Weight: 74.8 kg

DRUGS (6)
  1. COMPARATOR LETROZOLE [Suspect]
     Active Substance: LETROZOLE
     Dosage: UNK
     Route: 048
     Dates: start: 20190719, end: 20190719
  2. KISQALI [Suspect]
     Active Substance: RIBOCICLIB
     Indication: BREAST CANCER
     Dosage: 400 MG, QD
     Route: 048
     Dates: start: 20190607, end: 20191112
  3. COMPARATOR LETROZOLE [Suspect]
     Active Substance: LETROZOLE
     Indication: HER2 NEGATIVE BREAST CANCER
     Dosage: UNK
     Route: 048
     Dates: start: 20190607, end: 20190711
  4. COMPARATOR LETROZOLE [Suspect]
     Active Substance: LETROZOLE
     Dosage: UNK
     Route: 048
     Dates: start: 20190720, end: 20190725
  5. COMPARATOR LETROZOLE [Suspect]
     Active Substance: LETROZOLE
     Dosage: UNK
     Route: 048
     Dates: start: 20190712, end: 20190718
  6. COMPARATOR ANASTROZOLE [Suspect]
     Active Substance: ANASTROZOLE
     Indication: HER2 NEGATIVE BREAST CANCER
     Dosage: UNK
     Route: 048
     Dates: start: 20190726

REACTIONS (3)
  - Sepsis [Recovered/Resolved]
  - Device related infection [Recovered/Resolved]
  - Staphylococcal infection [Recovered/Resolved]

NARRATIVE: CASE EVENT DATE: 20210102
